FAERS Safety Report 8813961 (Version 1)
Quarter: 2012Q4

REPORT INFORMATION
  Report Type: 
  Country: IN (occurrence: IN)
  Receive Date: 20120928
  Receipt Date: 20120928
  Transmission Date: 20130627
  Serious: Yes (Other)
  Sender: FDA-Public Use
  Company Number: IN-009507513-1209IND008736

PATIENT
  Sex: Female

DRUGS (3)
  1. CANCIDAS [Suspect]
     Indication: CANDIDIASIS
     Dosage: 70 mg, UNK
     Route: 042
  2. CANCIDAS [Suspect]
     Dosage: 50 mg, qd
     Route: 042
  3. COLISTIN [Concomitant]

REACTIONS (1)
  - Haemorrhage [Recovered/Resolved]
